FAERS Safety Report 8779619 (Version 1)
Quarter: 2012Q4

REPORT INFORMATION
  Report Type: 
  Country: US (occurrence: US)
  Receive Date: 20120912
  Receipt Date: 20120912
  Transmission Date: 20130627
  Serious: Yes (Other)
  Sender: FDA-Public Use
  Company Number: US-BRISTOL-MYERS SQUIBB COMPANY-16929044

PATIENT
  Age: 76 Year

DRUGS (1)
  1. ONGLYZA TABS [Suspect]

REACTIONS (2)
  - Vascular dementia [Unknown]
  - Hypoglycaemia [Unknown]
